FAERS Safety Report 19251534 (Version 3)
Quarter: 2021Q3

REPORT INFORMATION
  Report Type: Spontaneous
  Country: PE (occurrence: PE)
  Receive Date: 20210512
  Receipt Date: 20210817
  Transmission Date: 20211014
  Serious: Yes (Hospitalization, Other)
  Sender: FDA-Public Use
  Company Number: PE-ELI_LILLY_AND_COMPANY-PE202105003258

PATIENT
  Age: 63 Year
  Sex: Male

DRUGS (1)
  1. HUMULIN 70/30 [Suspect]
     Active Substance: INSULIN HUMAN
     Indication: DIABETES MELLITUS
     Dosage: UNK UNK, UNKNOWN
     Route: 065

REACTIONS (6)
  - Cellulitis [Unknown]
  - Accident [Unknown]
  - Lower limb fracture [Unknown]
  - Incorrect dose administered [Unknown]
  - Muscle atrophy [Unknown]
  - Pain [Unknown]

NARRATIVE: CASE EVENT DATE: 202101
